FAERS Safety Report 18683321 (Version 1)
Quarter: 2020Q4

REPORT INFORMATION
  Report Type: Spontaneous
  Country: US (occurrence: US)
  Receive Date: 20201229
  Receipt Date: 20201229
  Transmission Date: 20210114
  Serious: Yes (Death)
  Sender: FDA-Public Use
  Company Number: None

PATIENT
  Sex: Female

DRUGS (19)
  1. FUROSEMIDE. [Concomitant]
     Active Substance: FUROSEMIDE
  2. NORTRIPTYLIN [Concomitant]
     Active Substance: NORTRIPTYLINE
  3. PROMETHAZINE [Concomitant]
     Active Substance: PROMETHAZINE HYDROCHLORIDE
  4. VALACYCLOVIR [Concomitant]
     Active Substance: VALACYCLOVIR HYDROCHLORIDE
  5. ACETAZOLAMID [Concomitant]
     Active Substance: ACETAZOLAMIDE
  6. HYDROCO/APAP [Concomitant]
     Active Substance: ACETAMINOPHEN\HYDROCODONE
  7. MEMANTINE. [Concomitant]
     Active Substance: MEMANTINE
  8. MONTELUKAST [Concomitant]
     Active Substance: MONTELUKAST SODIUM
  9. DEXAMETHASON [Concomitant]
     Active Substance: DEXAMETHASONE
  10. PANTOPRAZOLE [Concomitant]
     Active Substance: PANTOPRAZOLE
  11. SYMBICORT [Concomitant]
     Active Substance: BUDESONIDE\FORMOTEROL FUMARATE DIHYDRATE
  12. AFINITOR [Suspect]
     Active Substance: EVEROLIMUS
     Indication: DRUG THERAPY
     Dosage: ?          OTHER DOSE:1 TAB;?
     Route: 048
  13. ADVAIR HFA [Concomitant]
     Active Substance: FLUTICASONE PROPIONATE\SALMETEROL XINAFOATE
  14. TRIAMCINOLON CRE [Concomitant]
  15. MORPHINE SUL [Concomitant]
     Active Substance: MORPHINE SULFATE
  16. METHADONE [Concomitant]
     Active Substance: METHADONE HYDROCHLORIDE
  17. METOPROL TAR [Concomitant]
  18. GABAPENTIN. [Concomitant]
     Active Substance: GABAPENTIN
  19. LEVETIRACETA [Concomitant]
     Active Substance: LEVETIRACETAM

REACTIONS (1)
  - Death [None]
